FAERS Safety Report 8069176-1 (Version None)
Quarter: 2012Q1

REPORT INFORMATION
  Report Type: 
  Country: None (occurrence: None)
  Receive Date: 20120125
  Receipt Date: 20120119
  Transmission Date: 20120608
  Serious: No
  Sender: FDA-Public Use
  Company Number: US-PFIZER INC-2012016567

PATIENT
  Sex: Female

DRUGS (2)
  1. BOSENTAN [Concomitant]
     Dosage: 125 MG, 2X/DAY
     Route: 048
  2. PENICILLIN G PROCAINE [Suspect]
     Dosage: 80 MG, 3X/DAY

REACTIONS (1)
  - DRUG HYPERSENSITIVITY [None]
